FAERS Safety Report 11931670 (Version 1)
Quarter: 2016Q1

REPORT INFORMATION
  Report Type: Spontaneous
  Country: US (occurrence: US)
  Receive Date: 20160120
  Receipt Date: 20160120
  Transmission Date: 20160526
  Serious: No
  Sender: FDA-Public Use
  Company Number: US-INCYTE CORPORATION-2015IN005397

PATIENT
  Sex: Female

DRUGS (2)
  1. JAKAFI [Suspect]
     Active Substance: RUXOLITINIB
     Indication: MYELOFIBROSIS
     Dosage: 10 MG, UNK
     Route: 048
     Dates: start: 20150121
  2. JAKAFI [Suspect]
     Active Substance: RUXOLITINIB
     Dosage: 1 10 MG TAB QD AND ALTERNATE WITH 2 10 MG TABS QOD
     Dates: start: 20150121

REACTIONS (3)
  - Communication disorder [Unknown]
  - Platelet count decreased [Unknown]
  - Malaise [Unknown]
